FAERS Safety Report 8811441 (Version 1)
Quarter: 2012Q4

REPORT INFORMATION
  Report Type: 
  Country: US (occurrence: US)
  Receive Date: 20120927
  Receipt Date: 20120927
  Transmission Date: 20130627
  Serious: Yes (Hospitalization)
  Sender: FDA-Public Use
  Company Number: US-BRISTOL-MYERS SQUIBB COMPANY-16968851

PATIENT
  Age: 63 Year
  Sex: Male

DRUGS (5)
  1. CARBOPLATIN [Suspect]
     Indication: MALIGNANT MELANOMA
     Dosage: 1DF:AUC=5.
     Dates: start: 201104
  2. CISPLATIN [Suspect]
     Indication: MALIGNANT MELANOMA
     Route: 042
  3. VINBLASTINE [Concomitant]
     Indication: MALIGNANT MELANOMA
     Route: 042
  4. TEMOZOLOMIDE [Concomitant]
  5. PACLITAXEL [Concomitant]

REACTIONS (1)
  - Angina unstable [Recovered/Resolved]
